FAERS Safety Report 9279202 (Version 1)
Quarter: 2013Q2

REPORT INFORMATION
  Report Type: Spontaneous
  Country: BR (occurrence: BR)
  Receive Date: 20130508
  Receipt Date: 20130508
  Transmission Date: 20140414
  Serious: Yes (Other)
  Sender: FDA-Public Use
  Company Number: BR-PFIZER INC-2013139566

PATIENT
  Age: 80 Year
  Sex: Male

DRUGS (1)
  1. XALATAN [Suspect]
     Dosage: 3 UG (1 DROP IN BOTH EYES), 1X/DAY
     Route: 047
     Dates: start: 20130204

REACTIONS (2)
  - Cerebrovascular accident [Unknown]
  - Visual acuity reduced [Not Recovered/Not Resolved]
